FAERS Safety Report 5107296-1 (Version None)
Quarter: 2006Q3

REPORT INFORMATION
  Report Type: 
  Country: None (occurrence: None)
  Receive Date: 20060914
  Receipt Date: 20060906
  Transmission Date: 20061208
  Serious: Yes (Death)
  Sender: FDA-Public Use
  Company Number: 2006107396

PATIENT
  Sex: 0

DRUGS (1)
  1. SUDAFED 12 HOUR [Suspect]
     Indication: DRUG EXPOSURE DURING PREGNANCY
     Dosage: 1 TABLET AS NEEDED, PLACENTAL
     Route: 050
     Dates: start: 20060101

REACTIONS (2)
  - ABORTION SPONTANEOUS [None]
  - DRUG EXPOSURE DURING PREGNANCY [None]
